FAERS Safety Report 10387132 (Version 1)
Quarter: 2014Q1

REPORT INFORMATION
  Report Type: Spontaneous
  Country: US (occurrence: None)
  Receive Date: 20140306
  Receipt Date: 20140306
  Transmission Date: 20141002
  Serious: Yes (Other)
  Sender: FDA-Public Use
  Company Number: 163-21880-13043446

PATIENT
  Age: 62 Year
  Sex: Male
  Weight: 113.5 kg

DRUGS (1)
  1. REVLIMID (LENALIDOMIDE) (10 MILLIGRAM, CAPSULES) [Suspect]
     Indication: PLASMA CELL MYELOMA
     Dosage: 21 IN 21 D
     Route: 048
     Dates: start: 201011, end: 2010

REACTIONS (3)
  - Fatigue [None]
  - Pancytopenia [None]
  - Muscle spasms [None]
